FAERS Safety Report 8244386-9 (Version None)
Quarter: 2012Q1

REPORT INFORMATION
  Report Type: 
  Country: None (occurrence: None)
  Receive Date: 20120329
  Receipt Date: 20120327
  Transmission Date: 20120608
  Serious: Yes (Death, Other)
  Sender: FDA-Public Use
  Company Number: DZ-PFIZER INC-2012062144

PATIENT
  Age: 80 Year
  Sex: Female

DRUGS (9)
  1. ATORVASTATIN [Suspect]
     Indication: ISCHAEMIC STROKE
  2. ASPEGIC 1000 [Concomitant]
     Dosage: 100 MG, 1X/DAY
     Route: 048
  3. LOVENOX [Concomitant]
     Dosage: 40 MG, 1X/DAY
     Route: 050
  4. ATORVASTATIN [Suspect]
     Indication: MYOCARDIAL ISCHAEMIA
     Dosage: 80 MG, 1X/DAY
     Route: 048
     Dates: start: 20120210, end: 20120223
  5. RAMIPRIL [Concomitant]
     Dosage: 5 MG, 2X/DAY
     Route: 048
  6. FLAGYL [Concomitant]
     Dosage: 500 MG, 3X/DAY
     Route: 049
  7. CEFIZOX [Concomitant]
     Dosage: 1 G, 3X/DAY
     Route: 050
  8. ZANTAC [Concomitant]
     Dosage: 100 MG, 3X/DAY
     Route: 048
  9. PYOSTACINE [Concomitant]
     Dosage: 500 MG, 2X/DAY

REACTIONS (4)
  - OEDEMA PERIPHERAL [None]
  - ISCHAEMIC STROKE [None]
  - HEPATIC FAILURE [None]
  - HEPATITIS [None]
